FAERS Safety Report 8766486 (Version 2)
Quarter: 2012Q4

REPORT INFORMATION
  Report Type: 
  Country: US (occurrence: US)
  Receive Date: 20120904
  Receipt Date: 20121005
  Transmission Date: 20130627
  Serious: Yes (Death, Life-Threatening, Hospitalization, Other)
  Sender: FDA-Public Use
  Company Number: US-ASTRAZENECA-2012SE69078

PATIENT
  Age: 67 Year
  Sex: Male
  Weight: 89 kg

DRUGS (13)
  1. MEROPENEM [Suspect]
     Dosage: 1 GRAM IN 50 ML NS EVERY 8 HOUR
     Route: 042
     Dates: start: 20111015, end: 20111019
  2. ASPIRIN [Suspect]
     Indication: CARDIOVASCULAR EVENT PROPHYLAXIS
     Route: 048
     Dates: end: 20111105
  3. POTASSIUM CHLORIDE [Suspect]
     Indication: MEDICAL DIET
     Route: 048
     Dates: end: 20111105
  4. VANCOMYCIN HCL [Suspect]
     Route: 042
     Dates: start: 20111015, end: 20111015
  5. CRIZOTINIB [Suspect]
     Indication: NON-SMALL CELL LUNG CANCER
     Route: 048
     Dates: start: 20110603, end: 20111024
  6. LEVOTHYROXINE SODIUM [Suspect]
     Indication: HYPOTHYROIDISM
     Route: 048
     Dates: end: 20111105
  7. BENZONATATE [Suspect]
     Indication: COUGH
     Route: 048
     Dates: end: 20111105
  8. ZETIA [Suspect]
     Indication: HYPERLIPIDAEMIA
     Route: 048
     Dates: end: 20111105
  9. ZOCOR [Suspect]
     Indication: HYPERLIPIDAEMIA
     Route: 048
     Dates: end: 20111105
  10. COREG [Suspect]
     Indication: HYPERTENSION
     Route: 048
     Dates: end: 20111010
  11. LASIX [Suspect]
     Indication: HYPERTENSION
     Route: 048
     Dates: start: 20111025, end: 20111105
  12. FLUZONE [Suspect]
     Indication: ANTIVIRAL PROPHYLAXIS
     Route: 058
     Dates: start: 20111005, end: 20111005
  13. LEVOFLOXACIN [Suspect]
     Dosage: 750 MG/ D5W 150 ML EVERY 24 HOUR
     Route: 042
     Dates: start: 20111015, end: 20111018

REACTIONS (10)
  - Orthostatic hypotension [Fatal]
  - Ileus [Fatal]
  - Constipation [Fatal]
  - Disease progression [Fatal]
  - Non-small cell lung cancer [Fatal]
  - Failure to thrive [Fatal]
  - Fall [Unknown]
  - Loss of consciousness [Unknown]
  - Balance disorder [Unknown]
  - Oedema peripheral [Unknown]
